FAERS Safety Report 25581538 (Version 1)
Quarter: 2025Q3

REPORT INFORMATION
  Report Type: Spontaneous
  Country: US (occurrence: US)
  Receive Date: 20250719
  Receipt Date: 20250719
  Transmission Date: 20251020
  Serious: No
  Sender: NOVO NORDISK
  Company Number: US-NOVOPROD-1300836

PATIENT
  Age: 46 Year
  Sex: Female

DRUGS (3)
  1. WEGOVY [Suspect]
     Active Substance: SEMAGLUTIDE
     Indication: Weight control
     Dosage: 0.25 MG QW
     Route: 058
     Dates: start: 20240710
  2. WEGOVY [Suspect]
     Active Substance: SEMAGLUTIDE
     Indication: Blood cholesterol
  3. WEGOVY [Suspect]
     Active Substance: SEMAGLUTIDE
     Indication: Glucose tolerance impaired

REACTIONS (4)
  - Thirst [Not Recovered/Not Resolved]
  - Injection site haemorrhage [Unknown]
  - Injection site discharge [Unknown]
  - Device issue [Unknown]

NARRATIVE: CASE EVENT DATE: 20240710
